FAERS Safety Report 5352912-2 (Version None)
Quarter: 2007Q2

REPORT INFORMATION
  Report Type: 
  Country: None (occurrence: None)
  Receive Date: 20070611
  Receipt Date: 20070531
  Transmission Date: 20071010
  Serious: Yes (Other)
  Sender: FDA-Public Use
  Company Number: US-PFIZER INC-2006121066

PATIENT
  Sex: Female
  Weight: 77.1 kg

DRUGS (5)
  1. BEXTRA [Suspect]
     Indication: ARTHRITIS
     Dates: start: 20041028
  2. BEXTRA [Suspect]
     Indication: PAIN
  3. VIOXX [Suspect]
     Indication: ARTHRITIS
     Route: 048
     Dates: start: 19990601, end: 20040930
  4. VIOXX [Suspect]
     Indication: NECK PAIN
  5. VIOXX [Suspect]
     Indication: CARPAL TUNNEL SYNDROME

REACTIONS (2)
  - CARDIOVASCULAR DISORDER [None]
  - MYOCARDIAL INFARCTION [None]
